FAERS Safety Report 6312186-2 (Version None)
Quarter: 2009Q3

REPORT INFORMATION
  Report Type: 
  Country: None (occurrence: None)
  Receive Date: 20090817
  Receipt Date: 20090805
  Transmission Date: 20100115
  Serious: Yes (Hospitalization, Other)
  Sender: FDA-Public Use
  Company Number: US-ELI_LILLY_AND_COMPANY-US200908001834

PATIENT
  Age: 38 Year
  Sex: Female

DRUGS (5)
  1. CYMBALTA [Suspect]
     Dosage: 60 MG, UNK
     Dates: start: 20090501, end: 20090722
  2. LIDODERM [Concomitant]
     Route: 062
  3. NORVASC [Concomitant]
     Dosage: 5 MG, UNK
  4. BACLOFEN [Concomitant]
     Dosage: 10 MG, 2/D
  5. CLONAZEPAM [Concomitant]
     Dosage: 5 MG, EACH EVENING

REACTIONS (2)
  - HEPATIC ENZYME INCREASED [None]
  - HYPERSENSITIVITY [None]
